FAERS Safety Report 9746234 (Version 1)
Quarter: 2013Q4

REPORT INFORMATION
  Report Type: Spontaneous
  Country: FR (occurrence: FR)
  Receive Date: 20131211
  Receipt Date: 20131211
  Transmission Date: 20140711
  Serious: Yes (Death, Hospitalization)
  Sender: FDA-Public Use
  Company Number: FR-PFIZER INC-2013350198

PATIENT
  Age: 81 Year
  Sex: Female

DRUGS (4)
  1. SOLU-MEDROL [Suspect]
     Dosage: 80 MG, 1X/DAY
     Route: 042
     Dates: start: 20130923, end: 20130924
  2. SOLU-MEDROL [Suspect]
     Dosage: 1 DF, 3X/DAY
     Route: 055
     Dates: start: 20130923
  3. SOLUPRED [Suspect]
     Dosage: 60 MG, 1X/DAY (20 MG ORALLY DISINTEGRATING TABLET)
     Route: 048
     Dates: start: 20130917, end: 20130923
  4. MUCOMYST [Concomitant]
     Dosage: UNK
     Route: 055
     Dates: start: 20130923

REACTIONS (5)
  - Abscess [Fatal]
  - Infection [Fatal]
  - Arteritis [Fatal]
  - Septic shock [Unknown]
  - Pneumonia [Unknown]
